FAERS Safety Report 9713810 (Version 1)
Quarter: 2013Q4

REPORT INFORMATION
  Report Type: Spontaneous
  Country: CA (occurrence: CA)
  Receive Date: 20131126
  Receipt Date: 20131126
  Transmission Date: 20140711
  Serious: Yes (Other)
  Sender: FDA-Public Use
  Company Number: CA-TEVA-446395USA

PATIENT
  Age: 17 Year
  Sex: Male
  Weight: 71.4 kg

DRUGS (1)
  1. ETOPOSIDE [Suspect]
     Indication: HODGKIN^S DISEASE
     Route: 042
     Dates: start: 20131104, end: 20131104

REACTIONS (3)
  - Chest discomfort [Recovered/Resolved]
  - Blood pressure increased [Recovered/Resolved]
  - Erythema [Recovered/Resolved]
